FAERS Safety Report 5490931-6 (Version None)
Quarter: 2007Q4

REPORT INFORMATION
  Report Type: 
  Country: None (occurrence: None)
  Receive Date: 20071019
  Receipt Date: 20071010
  Transmission Date: 20080405
  Serious: Yes (Disabling, Other)
  Sender: FDA-Public Use
  Company Number: BR-PFIZER INC-2007086433

PATIENT
  Sex: Female
  Weight: 55 kg

DRUGS (3)
  1. DEPO-PROVERA SUSPENSION/INJ [Suspect]
     Indication: CONTRACEPTION
     Route: 030
     Dates: start: 20070729, end: 20070729
  2. ACETAMINOPHEN [Concomitant]
  3. DORIL [Concomitant]
     Route: 048

REACTIONS (9)
  - ABDOMINAL PAIN UPPER [None]
  - ANAEMIA [None]
  - ANOREXIA [None]
  - DIZZINESS [None]
  - DYSPNOEA [None]
  - MENOMETRORRHAGIA [None]
  - NAUSEA [None]
  - PAIN [None]
  - SWELLING [None]
